FAERS Safety Report 21669741 (Version 1)
Quarter: 2022Q4

REPORT INFORMATION
  Report Type: Spontaneous
  Country: US (occurrence: US)
  Receive Date: 20221201
  Receipt Date: 20221201
  Transmission Date: 20230113
  Serious: No
  Sender: FDA-Public Use
  Company Number: US-MAYNE PHARMA-2022MYN001433

PATIENT

DRUGS (2)
  1. LUTERA [Suspect]
     Active Substance: ETHINYL ESTRADIOL\LEVONORGESTREL
     Indication: Contraception
     Dosage: UNK, QD
     Route: 048
     Dates: start: 20220928, end: 20221014
  2. LUTERA [Suspect]
     Active Substance: ETHINYL ESTRADIOL\LEVONORGESTREL
     Dosage: UNK, QD
     Route: 048
     Dates: start: 20221014, end: 20221104

REACTIONS (3)
  - Sleep disorder [Unknown]
  - Crying [Unknown]
  - Affect lability [Unknown]
